FAERS Safety Report 6633661-7 (Version None)
Quarter: 2010Q1

REPORT INFORMATION
  Report Type: 
  Country: None (occurrence: None)
  Receive Date: 20100312
  Receipt Date: 20100305
  Transmission Date: 20100710
  Serious: Yes (Hospitalization, Other)
  Sender: FDA-Public Use
  Company Number: US-AMGEN-QUU369913

PATIENT
  Sex: Female
  Weight: 130 kg

DRUGS (12)
  1. ENBREL [Suspect]
     Indication: PSORIATIC ARTHROPATHY
     Route: 058
     Dates: start: 20080301
  2. GLYBURIDE [Concomitant]
  3. HYDROCHLOROTHIAZIDE [Concomitant]
  4. LISINOPRIL [Concomitant]
  5. ASPIRIN [Concomitant]
     Route: 048
  6. LOVASTATIN [Concomitant]
  7. GEMFIBROZIL [Concomitant]
  8. MULTI-VITAMINS [Concomitant]
  9. FOLATE SODIUM [Concomitant]
  10. D-VITAL CALCIUM [Concomitant]
  11. VITAMIN D [Concomitant]
  12. AMBIEN [Concomitant]

REACTIONS (16)
  - COMPRESSION FRACTURE [None]
  - COUGH [None]
  - DIABETES MELLITUS [None]
  - HEADACHE [None]
  - HYPERTENSION [None]
  - HYPOMAGNESAEMIA [None]
  - KIDNEY INFECTION [None]
  - KLEBSIELLA SEPSIS [None]
  - MYALGIA [None]
  - OBESITY [None]
  - OSTEOARTHRITIS [None]
  - OSTEOPOROSIS [None]
  - PSORIASIS [None]
  - PSORIATIC ARTHROPATHY [None]
  - SKIN CANDIDA [None]
  - URINARY TRACT INFECTION [None]
